FAERS Safety Report 23711654 (Version 2)
Quarter: 2024Q2

REPORT INFORMATION
  Report Type: Spontaneous
  Country: JP (occurrence: JP)
  Receive Date: 20240405
  Receipt Date: 20240624
  Transmission Date: 20240715
  Serious: Yes (Other)
  Sender: FDA-Public Use
  Company Number: JP-VIATRISJAPAN-2024M1028612AA

PATIENT
  Age: 68 Year
  Sex: Male

DRUGS (10)
  1. CELECOXIB [Suspect]
     Active Substance: CELECOXIB
     Indication: Renal cancer
     Dosage: UNK
     Route: 065
     Dates: start: 201507, end: 201907
  2. CELECOXIB [Suspect]
     Active Substance: CELECOXIB
     Indication: Metastases to bone
  3. CABOZANTINIB [Suspect]
     Active Substance: CABOZANTINIB
     Indication: Product used for unknown indication
     Route: 065
  4. INTERFERON ALFA NOS [Suspect]
     Active Substance: INTERFERON ALFA-2A OR INTERFERON ALFA-2B
     Indication: Renal cancer
     Dosage: UNK
     Route: 065
     Dates: start: 201507
  5. INTERFERON ALFA NOS [Suspect]
     Active Substance: INTERFERON ALFA-2A OR INTERFERON ALFA-2B
     Indication: Metastases to bone
  6. CIMETIDINE [Suspect]
     Active Substance: CIMETIDINE
     Indication: Renal cancer
     Dosage: UNK
     Route: 065
     Dates: start: 201507
  7. CIMETIDINE [Suspect]
     Active Substance: CIMETIDINE
     Indication: Metastases to bone
  8. CANDESARTAN [Suspect]
     Active Substance: CANDESARTAN
     Indication: Renal cancer
     Dosage: UNK
     Route: 065
     Dates: start: 201507
  9. CANDESARTAN [Suspect]
     Active Substance: CANDESARTAN
     Indication: Metastases to bone
  10. OXYCODONE [Concomitant]
     Active Substance: OXYCODONE\OXYCODONE HYDROCHLORIDE
     Indication: Back pain
     Dosage: 20 MILLIGRAM, QD
     Route: 065
     Dates: start: 201504

REACTIONS (2)
  - Interstitial lung disease [Recovering/Resolving]
  - Off label use [Unknown]

NARRATIVE: CASE EVENT DATE: 20210101
